FAERS Safety Report 21526464 (Version 1)
Quarter: 2022Q4

REPORT INFORMATION
  Report Type: Spontaneous
  Country: US (occurrence: US)
  Receive Date: 20221031
  Receipt Date: 20221031
  Transmission Date: 20230113
  Serious: No
  Sender: FDA-Public Use
  Company Number: US-UCBSA-2022042230

PATIENT
  Age: 48 Year
  Sex: Female

DRUGS (3)
  1. LEVETIRACETAM [Suspect]
     Active Substance: LEVETIRACETAM
     Indication: Seizure
     Dosage: HIGH DOSE
  2. VIMPAT [Suspect]
     Active Substance: LACOSAMIDE
     Indication: Seizure
     Dosage: HIGH DOSE
  3. PHENYTOIN [Suspect]
     Active Substance: PHENYTOIN
     Indication: Seizure
     Dosage: HIGH DOSE

REACTIONS (1)
  - Multiple-drug resistance [Unknown]
